FAERS Safety Report 5323128-0 (Version None)
Quarter: 2007Q2

REPORT INFORMATION
  Report Type: 
  Country: None (occurrence: None)
  Receive Date: 20070220
  Receipt Date: 20061127
  Transmission Date: 20071010
  Serious: No
  Sender: FDA-Public Use
  Company Number: WAES 0611USA07007

PATIENT
  Age: 57 Year
  Sex: Female

DRUGS (2)
  1. .. [Concomitant]
  2. JANUVIA [Suspect]
     Indication: DIABETES MELLITUS NON-INSULIN-DEPENDENT
     Dosage: 25 MG/DAILY/PO
     Route: 048
     Dates: start: 20061106

REACTIONS (4)
  - ANAL DISCOMFORT [None]
  - DIARRHOEA [None]
  - VISION BLURRED [None]
  - WEIGHT DECREASED [None]
